FAERS Safety Report 7178486-1 (Version None)
Quarter: 2010Q4

REPORT INFORMATION
  Report Type: 
  Country: None (occurrence: None)
  Receive Date: 20101220
  Receipt Date: 20101213
  Transmission Date: 20110411
  Serious: Yes (Hospitalization)
  Sender: FDA-Public Use
  Company Number: JP-ABBOTT-10P-087-0686500-00

PATIENT
  Age: 54 Year
  Sex: Female

DRUGS (5)
  1. HUMIRA [Suspect]
     Indication: RHEUMATOID ARTHRITIS
     Route: 058
     Dates: start: 20100803, end: 20100930
  2. FOLIC ACID [Concomitant]
     Indication: PROPHYLAXIS
     Dosage: 10MG/WK
     Route: 048
     Dates: start: 20100520, end: 20101119
  3. FOLIC ACID [Concomitant]
     Indication: ADVERSE DRUG REACTION
  4. LOXOPROFEN SODIUM HYDRATE [Concomitant]
     Indication: RHEUMATOID ARTHRITIS
     Dates: start: 20080101
  5. METHOTREXATE [Concomitant]
     Indication: RHEUMATOID ARTHRITIS
     Dosage: 6MG/WEEK
     Route: 048
     Dates: start: 20100520, end: 20101119

REACTIONS (1)
  - ACUTE PULMONARY OEDEMA [None]
